FAERS Safety Report 13937518 (Version 4)
Quarter: 2018Q1

REPORT INFORMATION
  Report Type: Spontaneous
  Country: US (occurrence: US)
  Receive Date: 20170905
  Receipt Date: 20180228
  Transmission Date: 20180508
  Serious: No
  Sender: FDA-Public Use
  Company Number: US-PFIZER INC-2017315426

PATIENT
  Age: 62 Year
  Sex: Female
  Weight: 78.2 kg

DRUGS (5)
  1. XELJANZ XR [Suspect]
     Active Substance: TOFACITINIB CITRATE
     Dosage: 11 MG, 1X/DAY
  2. LISINOPRIL. [Concomitant]
     Active Substance: LISINOPRIL
     Indication: BLOOD PRESSURE ABNORMAL
     Dosage: 5 MG, UNK
  3. ALPRAZOLAM. [Concomitant]
     Active Substance: ALPRAZOLAM
     Indication: PANIC DISORDER
     Dosage: 1 MG, 3X/DAY
  4. CYMBALTA [Concomitant]
     Active Substance: DULOXETINE HYDROCHLORIDE
     Dosage: 30 MG, DAILY
  5. RESTASIS [Concomitant]
     Active Substance: CYCLOSPORINE
     Dosage: UNK

REACTIONS (6)
  - Muscle spasms [Not Recovered/Not Resolved]
  - Myalgia [Unknown]
  - Musculoskeletal stiffness [Unknown]
  - Body height decreased [Unknown]
  - Condition aggravated [Not Recovered/Not Resolved]
  - Weight decreased [Unknown]
